FAERS Safety Report 8774770 (Version 1)
Quarter: 2012Q4

REPORT INFORMATION
  Report Type: 
  Country: US (occurrence: US)
  Receive Date: 20120910
  Receipt Date: 20120910
  Transmission Date: 20130627
  Serious: Yes (Other)
  Sender: FDA-Public Use
  Company Number: US-BAYER-2012-093219

PATIENT
  Sex: Male

DRUGS (1)
  1. BAYER ASPIRIN REGIMEN ADULT LOW STRENGTH [Suspect]
     Route: 048

REACTIONS (1)
  - Gastric haemorrhage [None]
